FAERS Safety Report 11197670 (Version 1)
Quarter: 2015Q2

REPORT INFORMATION
  Report Type: Spontaneous
  Country: US (occurrence: US)
  Receive Date: 20150617
  Receipt Date: 20150617
  Transmission Date: 20150821
  Serious: No
  Sender: FDA-Public Use
  Company Number: US-ASTRAZENECA-2015SE55091

PATIENT
  Sex: Female

DRUGS (5)
  1. IBRANCE [Concomitant]
     Active Substance: PALBOCICLIB
     Dosage: 125MG FOR 21 DAYS COMBINED WITH LETROZOLE
  2. XGEVA [Suspect]
     Active Substance: DENOSUMAB
  3. IBRANCE [Concomitant]
     Active Substance: PALBOCICLIB
     Dosage: 125MG FOR 21 DAYS COMBINED WITH LETROZOLE
  4. ARIMIDEX [Suspect]
     Active Substance: ANASTROZOLE
     Route: 048
     Dates: start: 20150204
  5. LETROZOLE. [Concomitant]
     Active Substance: LETROZOLE

REACTIONS (3)
  - Platelet count decreased [Unknown]
  - White blood cell count decreased [Unknown]
  - Haemoglobin decreased [Unknown]
